FAERS Safety Report 4496156-5 (Version None)
Quarter: 2004Q4

REPORT INFORMATION
  Report Type: 
  Country: None (occurrence: None)
  Receive Date: 20041108
  Receipt Date: 20041108
  Transmission Date: 20050328
  Serious: Yes (Other)
  Sender: FDA-Public Use
  Company Number: None

PATIENT
  Age: 54 Year
  Sex: Male
  Weight: 52.6173 kg

DRUGS (2)
  1. MS CONTIN [Suspect]
     Indication: PAIN
     Dosage: 130 MGM PO TID [INDEFENETLY)
     Route: 048
  2. MS CONTIN [Suspect]
     Indication: PANCREATITIS
     Dosage: 130 MGM PO TID [INDEFENETLY)
     Route: 048

REACTIONS (2)
  - FEELING ABNORMAL [None]
  - STOMACH DISCOMFORT [None]
